FAERS Safety Report 19278777 (Version 5)
Quarter: 2021Q3

REPORT INFORMATION
  Report Type: Spontaneous
  Country: JP (occurrence: JP)
  Receive Date: 20210520
  Receipt Date: 20210715
  Transmission Date: 20211014
  Serious: Yes (Death, Other)
  Sender: FDA-Public Use
  Company Number: JP-GLAXOSMITHKLINE-JP2021JPN104127

PATIENT
  Age: 68 Year
  Sex: Female

DRUGS (16)
  1. TRELEGY ELLIPTA [Suspect]
     Active Substance: FLUTICASONE FUROATE\UMECLIDINIUM BROMIDE\VILANTEROL TRIFENATATE
     Indication: ASTHMA
     Dosage: 200 ?G, QD
     Route: 055
     Dates: start: 20210402
  2. OLOPATADINE HYDROCHLORIDE. [Suspect]
     Active Substance: OLOPATADINE HYDROCHLORIDE
     Indication: RHINITIS ALLERGIC
     Dosage: UNK
     Route: 048
     Dates: start: 20210402
  3. CILNIDIPINE TABLETS [Concomitant]
     Indication: HYPERTENSION
     Dosage: UNK
     Route: 048
     Dates: start: 20190116
  4. ETHYL ICOSAPENTATE CAPSULE [Concomitant]
     Indication: ARTERIOSCLEROSIS
     Dosage: UNK
     Route: 048
     Dates: start: 20160226
  5. MEPTIN [Concomitant]
     Active Substance: PROCATEROL HYDROCHLORIDE
     Dosage: UNK
     Route: 055
  6. RABEPRAZOLE SODIUM TABLET [Concomitant]
     Dosage: UNK
     Route: 048
     Dates: start: 20191127
  7. PREDONINE [Suspect]
     Active Substance: PREDNISOLONE
     Indication: WHEEZING
     Dosage: UNK
     Route: 048
     Dates: start: 20210402
  8. CLOPIDOGREL SULFATE TABLETS [Concomitant]
     Indication: CEREBRAL INFARCTION
  9. PULMICORT TURBUHALER [Concomitant]
     Active Substance: BUDESONIDE
     Indication: ASTHMA
     Dosage: OCCASIONALLY USED
     Dates: start: 200805
  10. PULMICORT TURBUHALER [Concomitant]
     Active Substance: BUDESONIDE
     Dosage: 200 MCG PER DOSE, 4 TIMES
     Route: 055
     Dates: start: 20150420
  11. RELVAR ELLIPTA [Concomitant]
     Active Substance: FLUTICASONE FUROATE\VILANTEROL TRIFENATATE
     Indication: ASTHMA
     Dosage: 200 ?G
     Dates: start: 201906
  12. RELVAR ELLIPTA [Concomitant]
     Active Substance: FLUTICASONE FUROATE\VILANTEROL TRIFENATATE
     Dosage: 100 ?G
     Dates: start: 202007
  13. FENOFIBRATE. [Concomitant]
     Active Substance: FENOFIBRATE
     Indication: BLOOD TRIGLYCERIDES INCREASED
     Dosage: UNK
     Route: 048
     Dates: start: 20160330
  14. CLOPIDOGREL SULFATE TABLETS [Concomitant]
     Indication: VISUAL FIELD DEFECT
     Dosage: UNK
     Route: 048
     Dates: start: 20191127
  15. VASOLAN TABLET [Concomitant]
     Indication: TACHYCARDIA
     Dosage: UNK
     Route: 048
     Dates: start: 20150115
  16. FLUTIFORM [Concomitant]
     Active Substance: FLUTICASONE PROPIONATE\FORMOTEROL FUMARATE
     Indication: ASTHMA
     Dosage: UNK
     Dates: start: 201804

REACTIONS (8)
  - Laryngeal haematoma [Fatal]
  - Retroperitoneal haematoma [Fatal]
  - Arrhythmia [Fatal]
  - Ventricular fibrillation [Fatal]
  - Pneumothorax [Unknown]
  - Cardiac arrest [Fatal]
  - Asphyxia [Fatal]
  - Sternal fracture [Unknown]

NARRATIVE: CASE EVENT DATE: 20210402
